FAERS Safety Report 15404062 (Version 1)
Quarter: 2018Q3

REPORT INFORMATION
  Report Type: Spontaneous
  Country: US (occurrence: US)
  Receive Date: 20180919
  Receipt Date: 20180919
  Transmission Date: 20181010
  Serious: No
  Sender: FDA-Public Use
  Company Number: US-AVADEL SPECIALTY PHARMACEUTICALS, LLC-2018AVA00114

PATIENT
  Age: 85 Year
  Sex: Male
  Weight: 63.49 kg

DRUGS (3)
  1. NOCTIVA [Suspect]
     Active Substance: DESMOPRESSIN ACETATE
     Indication: HYPERTONIC BLADDER
     Dosage: UNK
     Dates: start: 20180620, end: 20180621
  2. UNSPECIFIED BLOOD THINNER [Concomitant]
     Active Substance: UNSPECIFIED INGREDIENT
  3. LOSARTAN. [Concomitant]
     Active Substance: LOSARTAN

REACTIONS (5)
  - Product use in unapproved indication [Not Recovered/Not Resolved]
  - Rhinorrhoea [Recovered/Resolved]
  - Throat irritation [Recovered/Resolved]
  - Sneezing [Recovered/Resolved]
  - Nasal discomfort [Recovered/Resolved]

NARRATIVE: CASE EVENT DATE: 201806
